FAERS Safety Report 7703889-3 (Version None)
Quarter: 2011Q3

REPORT INFORMATION
  Report Type: 
  Country: None (occurrence: None)
  Receive Date: 20110823
  Receipt Date: 20110812
  Transmission Date: 20111222
  Serious: Yes (Hospitalization)
  Sender: FDA-Public Use
  Company Number: US-BAYER-201041957NA

PATIENT
  Age: 24 Year
  Sex: Female
  Weight: 61 kg

DRUGS (6)
  1. AZITHROMYCIN [Concomitant]
     Indication: PHARYNGITIS STREPTOCOCCAL
     Dosage: UNK
     Dates: start: 20090901
  2. PRILOSEC [Concomitant]
  3. YAZ [Suspect]
     Dosage: UNK UNK, UNK
     Route: 048
     Dates: start: 20070813, end: 20081101
  4. VICODIN [Concomitant]
  5. YASMIN [Suspect]
     Dosage: UNK UNK, UNK
     Route: 048
     Dates: start: 20040707, end: 20040901
  6. LEVAQUIN [Concomitant]
     Indication: STAPHYLOCOCCAL INFECTION
     Dosage: 500 MG, BID
     Dates: start: 20090913

REACTIONS (1)
  - CHOLELITHIASIS [None]
